FAERS Safety Report 16700496 (Version 1)
Quarter: 2019Q3

REPORT INFORMATION
  Report Type: Spontaneous
  Country: US (occurrence: US)
  Receive Date: 20190814
  Receipt Date: 20190814
  Transmission Date: 20191004
  Serious: Yes (Other)
  Sender: FDA-Public Use
  Company Number: US-BEH-2019105627

PATIENT
  Age: 63 Year
  Sex: Female

DRUGS (1)
  1. HIZENTRA [Suspect]
     Active Substance: HUMAN IMMUNOGLOBULIN G
     Indication: PRIMARY IMMUNODEFICIENCY SYNDROME
     Dosage: 24 GRAM, QW
     Route: 058
     Dates: start: 201809

REACTIONS (5)
  - Diabetes mellitus [Unknown]
  - No adverse event [Unknown]
  - Uterine cancer [Unknown]
  - Unevaluable event [Unknown]
  - Intentional product use issue [Unknown]
